FAERS Safety Report 24255380 (Version 1)
Quarter: 2024Q3

REPORT INFORMATION
  Report Type: Spontaneous
  Country: US (occurrence: US)
  Receive Date: 20240827
  Receipt Date: 20240827
  Transmission Date: 20241017
  Serious: No
  Sender: SANOFI AVENTIS
  Company Number: US-SA-SAC20240817000975

PATIENT
  Sex: Female
  Weight: 45.351 kg

DRUGS (2)
  1. DUPIXENT [Suspect]
     Active Substance: DUPILUMAB
     Indication: Asthma
     Dosage: 300 MG, QOW
     Route: 058
  2. ALBUTEROL SULFATE [Concomitant]
     Active Substance: ALBUTEROL SULFATE
     Indication: Asthma

REACTIONS (6)
  - Tremor [Unknown]
  - Behaviour disorder [Unknown]
  - Feeling abnormal [Unknown]
  - Pallor [Unknown]
  - Fatigue [Unknown]
  - Dizziness [Unknown]
